FAERS Safety Report 20130009 (Version 1)
Quarter: 2021Q4

REPORT INFORMATION
  Report Type: Spontaneous
  Country: US (occurrence: None)
  Receive Date: 20211129
  Receipt Date: 20211129
  Transmission Date: 20220303
  Serious: Yes (Hospitalization)
  Sender: FDA-Public Use
  Company Number: None

PATIENT
  Sex: Male

DRUGS (2)
  1. INLYTA [Suspect]
     Active Substance: AXITINIB
     Indication: Neoplasm malignant
     Dosage: FREQUENCY : EVERY 12 HOURS;?
     Route: 048
     Dates: start: 202101
  2. INLYTA [Suspect]
     Active Substance: AXITINIB
     Dosage: FREQUENCY : EVERY 12 HOURS;?
     Route: 048
     Dates: start: 202101

REACTIONS (1)
  - Nephrectomy [None]
